FAERS Safety Report 13127958 (Version 5)
Quarter: 2019Q1

REPORT INFORMATION
  Report Type: Spontaneous
  Country: US (occurrence: US)
  Receive Date: 20170118
  Receipt Date: 20190131
  Transmission Date: 20190417
  Serious: Yes (Hospitalization, Other)
  Sender: FDA-Public Use
  Company Number: US-DSJP-DSU-2016-128333

PATIENT

DRUGS (1)
  1. BENICAR [Suspect]
     Active Substance: OLMESARTAN MEDOXOMIL
     Indication: HYPERTENSION
     Dosage: 40 MG, QD
     Route: 048
     Dates: start: 20140101, end: 2015

REACTIONS (7)
  - Mallory-Weiss syndrome [Recovering/Resolving]
  - Acute kidney injury [Unknown]
  - Sprue-like enteropathy [Not Recovered/Not Resolved]
  - Gastrointestinal ulcer [Unknown]
  - Autoimmune pancreatitis [Recovering/Resolving]
  - Clostridium difficile infection [Recovering/Resolving]
  - Iron deficiency anaemia [Unknown]

NARRATIVE: CASE EVENT DATE: 2014
